FAERS Safety Report 18873943 (Version 2)
Quarter: 2021Q1

REPORT INFORMATION
  Report Type: Spontaneous
  Country: US (occurrence: US)
  Receive Date: 20210210
  Receipt Date: 20210226
  Transmission Date: 20210420
  Serious: Yes (Death, Hospitalization, Other)
  Sender: FDA-Public Use
  Company Number: US-ABBVIE-21K-163-3768745-00

PATIENT
  Age: 67 Year
  Sex: Male

DRUGS (2)
  1. IMBRUVICA [Suspect]
     Active Substance: IBRUTINIB
     Route: 048
     Dates: end: 202008
  2. IMBRUVICA [Suspect]
     Active Substance: IBRUTINIB
     Indication: CHRONIC LYMPHOCYTIC LEUKAEMIA
     Route: 048
     Dates: start: 20200624

REACTIONS (12)
  - Neuropathy peripheral [Unknown]
  - Cerebrovascular accident [Unknown]
  - Respiratory failure [Unknown]
  - Lung neoplasm malignant [Unknown]
  - Diabetes mellitus inadequate control [Unknown]
  - Anaemia [Unknown]
  - Death [Fatal]
  - Pneumonia [Unknown]
  - Chronic obstructive pulmonary disease [Unknown]
  - Pulmonary embolism [Unknown]
  - Atrial fibrillation [Unknown]
  - Treatment noncompliance [Unknown]

NARRATIVE: CASE EVENT DATE: 202008
